FAERS Safety Report 6028041-1 (Version None)
Quarter: 2008Q4

REPORT INFORMATION
  Report Type: 
  Country: None (occurrence: None)
  Receive Date: 20081231
  Receipt Date: 20081223
  Transmission Date: 20090506
  Serious: Yes (Life-Threatening, Hospitalization)
  Sender: FDA-Public Use
  Company Number: GXKR2008IE12245

PATIENT
  Age: 38 Year
  Sex: Male
  Weight: 86 kg

DRUGS (6)
  1. ACETYLCYSTEINE (NGX) (ACETYLCYSTEINE) UNKNOWN [Suspect]
     Indication: PROPHYLAXIS
     Dosage: 12,900MG IN 200ML 5%DEXTROSE, INTRAVENOUS
     Route: 042
  2. ACETAMINOPHEN [Suspect]
     Indication: INCORRECT DOSE ADMINISTERED
     Dosage: 20-24 G
  3. BROMAZEPAM (BROMAZEPAM) [Concomitant]
  4. DEXTROSE (GLUCOSE) , 5 % [Concomitant]
  5. LITHIUM CARBONATE [Concomitant]
  6. CITALOPRAM HYDROBROMIDE [Concomitant]

REACTIONS (6)
  - ANAPHYLACTIC REACTION [None]
  - BRADYCARDIA [None]
  - CARDIO-RESPIRATORY ARREST [None]
  - HYPOTENSION [None]
  - MULTIPLE DRUG OVERDOSE INTENTIONAL [None]
  - RESPIRATORY DEPRESSION [None]
